FAERS Safety Report 8828920 (Version 2)
Quarter: 2013Q1

REPORT INFORMATION
  Report Type: Spontaneous
  Country: DE (occurrence: DE)
  Receive Date: 20121008
  Receipt Date: 20130104
  Transmission Date: 20140127
  Serious: Yes (Other)
  Sender: FDA-Public Use
  Company Number: DE-B.I. PHARMACEUTICALS,INC./RIDGEFIELD-2012-DE-02333DE

PATIENT
  Age: 75 Year
  Sex: Female
  Weight: 85.5 kg

DRUGS (3)
  1. PRADAXA [Suspect]
     Indication: ATRIAL FIBRILLATION
     Dosage: STRENGHT/DOSE: 1X100MG / 1X 75 MG
     Dates: start: 20111024
  2. ENABETA COMP [Concomitant]
  3. METOPROLOL [Concomitant]

REACTIONS (3)
  - Myocardial infarction [Unknown]
  - Hepatic steatosis [Not Recovered/Not Resolved]
  - Blood cholesterol increased [Recovered/Resolved]
